FAERS Safety Report 6867874-6 (Version None)
Quarter: 2010Q3

REPORT INFORMATION
  Report Type: 
  Country: None (occurrence: None)
  Receive Date: 20100722
  Receipt Date: 20080505
  Transmission Date: 20110219
  Serious: No
  Sender: FDA-Public Use
  Company Number: US-PFIZER INC-2008039754

PATIENT
  Sex: Female
  Weight: 51.3 kg

DRUGS (7)
  1. CHANTIX [Suspect]
     Indication: SMOKING CESSATION THERAPY
     Dates: start: 20080401, end: 20080501
  2. WARFARIN SODIUM [Concomitant]
  3. ALL OTHER THERAPEUTIC PRODUCTS [Concomitant]
     Indication: MIGRAINE
  4. CARISOPRODOL [Concomitant]
     Indication: MUSCLE SPASMS
  5. WELLBUTRIN XL [Concomitant]
  6. ALBUTEROL [Concomitant]
     Indication: EMPHYSEMA
     Route: 055
  7. FORADIL [Concomitant]
     Indication: EMPHYSEMA

REACTIONS (3)
  - CHEST DISCOMFORT [None]
  - DYSPNOEA [None]
  - FEELING ABNORMAL [None]
